FAERS Safety Report 11617512 (Version 1)
Quarter: 2015Q4

REPORT INFORMATION
  Report Type: Spontaneous
  Country: US (occurrence: US)
  Receive Date: 20151009
  Receipt Date: 20151009
  Transmission Date: 20160304
  Serious: Yes (Other)
  Sender: FDA-Public Use
  Company Number: US-BAYER-2015-435707

PATIENT
  Age: 78 Year
  Sex: Female

DRUGS (1)
  1. BAYER ADVANCED ASPIRIN EXTRA STRENGTH [Suspect]
     Active Substance: ASPIRIN
     Indication: PAIN IN EXTREMITY
     Dosage: 1 DF, PRN
     Route: 048

REACTIONS (2)
  - Foreign body [Recovered/Resolved]
  - Burn oral cavity [Recovered/Resolved]
